FAERS Safety Report 24273144 (Version 1)
Quarter: 2024Q3

REPORT INFORMATION
  Report Type: Spontaneous
  Country: US (occurrence: US)
  Receive Date: 20240902
  Receipt Date: 20240902
  Transmission Date: 20241017
  Serious: Yes (Hospitalization, Other)
  Sender: CHEPLAPHARM
  Company Number: US-ROCHE-10000062786

PATIENT
  Age: 51 Year
  Sex: Female
  Weight: 87.089 kg

DRUGS (5)
  1. CAPECITABINE [Suspect]
     Active Substance: CAPECITABINE
     Indication: Colorectal cancer
     Dosage: MORE DOSAGE INFORMATION: 500MG TABLETS; 2 IN THE MORNING AND 2 AT NIGHT.?DAILY DOSE: 4 DOSAGE FORM
     Route: 048
     Dates: end: 202305
  2. CAPECITABINE [Suspect]
     Active Substance: CAPECITABINE
     Indication: Colorectal cancer
     Dosage: TAKE 4 TABS ORAL 2 TWICE A DAY EVERY 14 DAYS THEN 1 WEEK OFF.
     Route: 048
  3. CAPECITABINE [Suspect]
     Active Substance: CAPECITABINE
     Indication: Colorectal cancer
     Dosage: TAKE 2 TABS ORAL 2 TWICE A DAY EVERY 14 DAYS THEN 1 WEEK OFF.
     Route: 048
  4. AVASTIN [Suspect]
     Active Substance: BEVACIZUMAB
     Indication: Rectal cancer
     Route: 042
  5. FAMOTIDINE [Concomitant]
     Active Substance: FAMOTIDINE
     Indication: Gastrooesophageal reflux disease

REACTIONS (13)
  - Lung carcinoma cell type unspecified stage IV [Not Recovered/Not Resolved]
  - Asthenia [Recovered/Resolved]
  - Renal impairment [Recovered/Resolved]
  - Decreased appetite [Recovered/Resolved]
  - Fluid intake reduced [Recovered/Resolved]
  - Weight decreased [Recovered/Resolved]
  - Blood glucose decreased [Recovered/Resolved]
  - Hypotension [Recovered/Resolved]
  - Skin reaction [Recovered/Resolved]
  - Nausea [Not Recovered/Not Resolved]
  - Vomiting [Not Recovered/Not Resolved]
  - Constipation [Not Recovered/Not Resolved]
  - Diarrhoea [Not Recovered/Not Resolved]

NARRATIVE: CASE EVENT DATE: 20230702
